FAERS Safety Report 22209780 (Version 1)
Quarter: 2023Q2

REPORT INFORMATION
  Report Type: Other
  Country: IT (occurrence: IT)
  Receive Date: 20230414
  Receipt Date: 20230414
  Transmission Date: 20230721
  Serious: Yes (Life-Threatening, Other)
  Sender: FDA-Public Use
  Company Number: IT-CELLTRION INC.-2023IT007510

PATIENT

DRUGS (1)
  1. INFLIXIMAB [Suspect]
     Active Substance: INFLIXIMAB
     Indication: Crohn^s disease
     Dosage: 33 MG, TOTAL (REMSIMA 185MG (5MG/KG). PRIMA DOSE DI MANTENIMENTO. FREQUENCY: 1 TOTAL)
     Route: 042
     Dates: start: 20230405, end: 20230405

REACTIONS (2)
  - Anaphylactic reaction [Recovered/Resolved]
  - Underdose [Unknown]

NARRATIVE: CASE EVENT DATE: 20230405
